FAERS Safety Report 8999179 (Version 2)
Quarter: 2013Q4

REPORT INFORMATION
  Report Type: Spontaneous
  Country: GB (occurrence: GB)
  Receive Date: 20130103
  Receipt Date: 20131002
  Transmission Date: 20140711
  Serious: Yes (Hospitalization, Other)
  Sender: FDA-Public Use
  Company Number: GB-009507513-1301GBR000527

PATIENT
  Age: 58 Year
  Sex: Male

DRUGS (7)
  1. MIRTAZAPINE [Suspect]
     Indication: DEPRESSION
     Dosage: 45 MG, QD
     Route: 048
  2. ARIPIPRAZOLE [Suspect]
     Dosage: 30 MG, QD
     Route: 048
  3. KWELLS [Suspect]
     Indication: SALIVARY HYPERSECRETION
     Dosage: 300 MICROGRAM, QD
     Route: 060
  4. LAMOTRIGINE [Suspect]
     Indication: DEPRESSED MOOD
     Dosage: 100 MG, QD
     Route: 048
  5. PROCYCLIDINE HYDROCHLORIDE [Suspect]
     Indication: EXTRAPYRAMIDAL DISORDER
     Dosage: 10 MG, QD
     Route: 048
  6. VENLAFAXINE HYDROCHLORIDE [Suspect]
     Indication: DEPRESSION
     Dosage: 75 MG 1 DAY
     Route: 048
  7. ZAPONEX [Suspect]
     Indication: SCHIZOPHRENIA
     Dosage: 225 MG 1 DAY
     Route: 048
     Dates: start: 20120806, end: 20120823

REACTIONS (12)
  - Full blood count abnormal [Recovered/Resolved]
  - Anaemia [Not Recovered/Not Resolved]
  - Leukopenia [Recovered/Resolved]
  - Lymphocyte count decreased [Not Recovered/Not Resolved]
  - Mean cell haemoglobin decreased [Not Recovered/Not Resolved]
  - Mean cell volume decreased [Not Recovered/Not Resolved]
  - Neutropenia [Recovered/Resolved]
  - Neutrophil count decreased [Recovered/Resolved]
  - Haematocrit decreased [Not Recovered/Not Resolved]
  - Platelet count decreased [Recovered/Resolved]
  - Red blood cell count decreased [Not Recovered/Not Resolved]
  - White blood cell count decreased [Recovered/Resolved]
